FAERS Safety Report 11589831 (Version 1)
Quarter: 2015Q4

REPORT INFORMATION
  Report Type: Spontaneous
  Country: US (occurrence: US)
  Receive Date: 20151002
  Receipt Date: 20151002
  Transmission Date: 20160304
  Serious: Yes (Hospitalization, Other)
  Sender: FDA-Public Use
  Company Number: US-GLAXOSMITHKLINE-US2015GSK140313

PATIENT
  Age: 67 Year
  Sex: Female

DRUGS (3)
  1. ONDANSETRON [Suspect]
     Active Substance: ONDANSETRON
     Indication: VOMITING
  2. ONDANSETRON [Suspect]
     Active Substance: ONDANSETRON
     Indication: NAUSEA
     Dosage: 8 MG, UNK
     Route: 048
  3. ACETAMINOPHEN + CODEINE [Concomitant]

REACTIONS (8)
  - Dysarthria [Unknown]
  - Agitation [Unknown]
  - Encephalopathy [Unknown]
  - Confusional state [Unknown]
  - Mental status changes [Recovered/Resolved]
  - Dyskinesia [Unknown]
  - Pyrexia [Unknown]
  - Dry mouth [Unknown]
